FAERS Safety Report 6831767-0 (Version None)
Quarter: 2010Q3

REPORT INFORMATION
  Report Type: 
  Country: None (occurrence: None)
  Receive Date: 20100706
  Receipt Date: 20100630
  Transmission Date: 20110219
  Serious: Yes (Death, Life-Threatening)
  Sender: FDA-Public Use
  Company Number: 2010SP026582

PATIENT
  Age: 49 Year
  Sex: Male

DRUGS (6)
  1. PEG-INTRON [Suspect]
     Indication: HEPATITIS C
     Dosage: 150 MCG, QW, SC
     Route: 058
     Dates: start: 20091222, end: 20100505
  2. RIBAVIRIN [Suspect]
     Indication: HEPATITIS C
     Dosage: 1200 MG, QD, PO
     Route: 048
     Dates: start: 20091222, end: 20100505
  3. ELTROMBOPAG (ELTROMBOPAG) [Suspect]
     Indication: THROMBOCYTOPENIA
     Dosage: 25 MG, QD, PO; 50 MG, QD, PO
     Route: 048
     Dates: start: 20091127, end: 20091211
  4. ELTROMBOPAG (ELTROMBOPAG) [Suspect]
     Indication: THROMBOCYTOPENIA
     Dosage: 25 MG, QD, PO; 50 MG, QD, PO
     Route: 048
     Dates: start: 20091212, end: 20091221
  5. BLINDED ELTROMBOPAG (ELTROMBOPAG) [Suspect]
     Indication: THROMBOCYTOPENIA
     Dosage: PO, 100MG, PO
     Route: 048
     Dates: start: 20091222, end: 20100207
  6. BLINDED ELTROMBOPAG (ELTROMBOPAG) [Suspect]
     Indication: THROMBOCYTOPENIA
     Dosage: PO, 100MG, PO
     Route: 048
     Dates: start: 20100208, end: 20100505

REACTIONS (2)
  - ABDOMINAL SEPSIS [None]
  - GASTROINTESTINAL DISORDER [None]
